FAERS Safety Report 7414675-6 (Version None)
Quarter: 2011Q2

REPORT INFORMATION
  Report Type: 
  Country: None (occurrence: None)
  Receive Date: 20110406
  Receipt Date: 20110316
  Transmission Date: 20111010
  Serious: Yes (Hospitalization)
  Sender: FDA-Public Use
  Company Number: 54973 AE # 403

PATIENT
  Age: 2 Year
  Sex: Male

DRUGS (1)
  1. HYLAND'S SNIFFLES 'N SNEEZES 4 KINDS [Suspect]
     Indication: NASOPHARYNGITIS
     Dosage: 80 TABS X1

REACTIONS (4)
  - INCORRECT DOSE ADMINISTERED [None]
  - HERBAL TOXICITY [None]
  - TACHYCARDIA [None]
  - ACCIDENTAL DRUG INTAKE BY CHILD [None]
